FAERS Safety Report 11179985 (Version 1)
Quarter: 2015Q2

REPORT INFORMATION
  Report Type: Spontaneous
  Country: US (occurrence: US)
  Receive Date: 20150611
  Receipt Date: 20150611
  Transmission Date: 20150821
  Serious: No
  Sender: FDA-Public Use
  Company Number: US-TEVA-563585USA

PATIENT
  Sex: Female

DRUGS (1)
  1. DULOXETINE [Suspect]
     Active Substance: DULOXETINE
     Indication: BACK PAIN
     Route: 065
     Dates: start: 20150513

REACTIONS (7)
  - Tinnitus [Unknown]
  - Back pain [Unknown]
  - Nightmare [Unknown]
  - Headache [Unknown]
  - Product substitution issue [Unknown]
  - Drug ineffective [Unknown]
  - Vision blurred [Unknown]

NARRATIVE: CASE EVENT DATE: 20150513
